FAERS Safety Report 19015644 (Version 1)
Quarter: 2021Q1

REPORT INFORMATION
  Report Type: Spontaneous
  Country: NO (occurrence: NO)
  Receive Date: 20210317
  Receipt Date: 20210317
  Transmission Date: 20210420
  Serious: Yes (Hospitalization)
  Sender: FDA-Public Use
  Company Number: NO-ROCHE-2787627

PATIENT
  Age: 45 Year
  Sex: Female

DRUGS (1)
  1. HERCEPTIN [Suspect]
     Active Substance: TRASTUZUMAB
     Indication: PRODUCT USED FOR UNKNOWN INDICATION
     Route: 042

REACTIONS (8)
  - Alopecia [Unknown]
  - Impaired healing [Unknown]
  - Onychoclasis [Unknown]
  - Rash [Unknown]
  - Myalgia [Unknown]
  - Cancer fatigue [Unknown]
  - Neuralgia [Unknown]
  - Fatigue [Unknown]
